FAERS Safety Report 5344160-7 (Version None)
Quarter: 2007Q2

REPORT INFORMATION
  Report Type: 
  Country: None (occurrence: None)
  Receive Date: 20070604
  Receipt Date: 20070521
  Transmission Date: 20071010
  Serious: Yes (Life-Threatening)
  Sender: FDA-Public Use
  Company Number: FR-ROCHE-498782

PATIENT
  Age: 74 Year
  Sex: Female

DRUGS (15)
  1. VALIUM [Suspect]
     Indication: DRUG USE FOR UNKNOWN INDICATION
     Route: 048
  2. RIVOTRIL [Suspect]
     Indication: DRUG USE FOR UNKNOWN INDICATION
     Dosage: DOSAGE REGIMEN REPORTED AS 40 MG/ML Q.
     Route: 048
  3. MS CONTIN [Suspect]
     Indication: DRUG USE FOR UNKNOWN INDICATION
     Route: 048
  4. SEVREDOL [Suspect]
     Indication: DRUG USE FOR UNKNOWN INDICATION
     Route: 048
  5. DEROXAT [Concomitant]
     Dosage: INITIAL DOSAGE: 40 MG DAILY. DOSE WAS LATER DECREASED.
     Route: 048
  6. LIORESAL [Concomitant]
     Indication: NERVOUS SYSTEM DISORDER
     Route: 048
  7. DAFALGAN [Concomitant]
  8. IRBESARTAN [Concomitant]
  9. GINKOR FORT [Concomitant]
  10. ZANTAC [Concomitant]
  11. SPAGULAX [Concomitant]
  12. COMBIVENT [Concomitant]
  13. IMPORTAL [Concomitant]
  14. MAGNE B6 [Concomitant]
  15. SEREVENT [Concomitant]

REACTIONS (3)
  - BRONCHOSPASM [None]
  - RESPIRATORY ACIDOSIS [None]
  - RESPIRATORY DEPRESSION [None]
